FAERS Safety Report 5602238-4 (Version None)
Quarter: 2008Q1

REPORT INFORMATION
  Report Type: 
  Country: None (occurrence: None)
  Receive Date: 20080125
  Receipt Date: 20080118
  Transmission Date: 20080703
  Serious: Yes (Other)
  Sender: FDA-Public Use
  Company Number: DE-JNJFOC-20080100114

PATIENT
  Age: 54 Year
  Weight: 60 kg

DRUGS (7)
  1. REMICADE [Suspect]
     Dosage: 5 MG/KG, RATE OF INFUSION: OVER 3 HOURS
     Route: 042
  2. REMICADE [Suspect]
     Route: 042
  3. REMICADE [Suspect]
     Indication: ANKYLOSING SPONDYLITIS
     Dosage: INITIAL INFUSION
     Route: 042
  4. SOLU-DECORTIN [Concomitant]
     Indication: PREMEDICATION
     Route: 065
  5. ANTIHISTAMINE [Concomitant]
     Indication: PREMEDICATION
     Route: 065
  6. VOLTAREN [Concomitant]
     Route: 065
  7. ILLEGIBLE MEDICATION [Concomitant]
     Route: 065

REACTIONS (4)
  - DRUG INEFFECTIVE [None]
  - DRUG INTOLERANCE [None]
  - INFUSION RELATED REACTION [None]
  - PANIC DISORDER [None]
